FAERS Safety Report 5284209-3 (Version None)
Quarter: 2007Q1

REPORT INFORMATION
  Report Type: 
  Country: None (occurrence: None)
  Receive Date: 20070328
  Receipt Date: 20070314
  Transmission Date: 20070707
  Serious: Yes (Other)
  Sender: FDA-Public Use
  Company Number: 2006BI017170

PATIENT
  Age: 53 Year
  Sex: Female

DRUGS (3)
  1. NATALIZUMAB [Suspect]
     Indication: MULTIPLE SCLEROSIS
     Dosage: 300 MG;QM;IV
     Route: 042
     Dates: start: 20050201, end: 20050201
  2. NATALIZUMAB [Suspect]
     Indication: MULTIPLE SCLEROSIS
     Dosage: 300 MG;QM;IV
     Route: 042
     Dates: start: 20061020
  3. NATALIZUMAB [Suspect]

REACTIONS (27)
  - ANXIETY [None]
  - ARTHRALGIA [None]
  - BLOOD PRESSURE FLUCTUATION [None]
  - BLOOD PRESSURE INCREASED [None]
  - CHEST PAIN [None]
  - CHILLS [None]
  - COUGH [None]
  - DYSPNOEA [None]
  - ERYTHEMA [None]
  - FEELING HOT [None]
  - FLUSHING [None]
  - HYPERSENSITIVITY [None]
  - HYPERVENTILATION [None]
  - HYPOTENSION [None]
  - INFUSION RELATED REACTION [None]
  - MUSCLE CONTRACTIONS INVOLUNTARY [None]
  - MUSCLE DISORDER [None]
  - MUSCLE SPASMS [None]
  - NAUSEA [None]
  - NEUTRALISING ANTIBODIES POSITIVE [None]
  - PAIN IN EXTREMITY [None]
  - PAIN IN JAW [None]
  - PULSE ABNORMAL [None]
  - RASH [None]
  - RASH MACULAR [None]
  - RESPIRATORY DISTRESS [None]
  - URTICARIA [None]
